FAERS Safety Report 10076286 (Version 3)
Quarter: 2014Q3

REPORT INFORMATION
  Report Type: Spontaneous
  Country: US (occurrence: None)
  Receive Date: 20140410
  Receipt Date: 20140806
  Transmission Date: 20150326
  Serious: Yes (Hospitalization, Other)
  Sender: FDA-Public Use
  Company Number: UTC-044173

PATIENT
  Age: 52 Year
  Sex: Female
  Weight: 120.1 kg

DRUGS (3)
  1. AZELASTINE [Suspect]
     Active Substance: AZELASTINE
     Indication: MULTIPLE ALLERGIES
     Route: 045
  2. REMODULIN [Suspect]
     Active Substance: TREPROSTINIL
     Indication: PULMONARY ARTERIAL HYPERTENSION
     Route: 041
     Dates: start: 20131212
  3. TRACLEER [Concomitant]
     Active Substance: BOSENTAN\BOSENTAN MONOHYDRATE

REACTIONS (18)
  - Flushing [None]
  - Headache [None]
  - Infusion site swelling [None]
  - Injection site pain [None]
  - Palpitations [None]
  - Accidental overdose [None]
  - Device occlusion [None]
  - Vomiting [None]
  - Drug dose omission [None]
  - Infusion site irritation [None]
  - Anxiety [None]
  - Medication error [None]
  - Nausea [None]
  - Diarrhoea [None]
  - Infusion site pain [None]
  - Product taste abnormal [None]
  - Infusion site erythema [None]
  - Cor pulmonale chronic [None]

NARRATIVE: CASE EVENT DATE: 201401
